FAERS Safety Report 7498564-7 (Version None)
Quarter: 2011Q2

REPORT INFORMATION
  Report Type: 
  Country: None (occurrence: None)
  Receive Date: 20110516
  Receipt Date: 20110502
  Transmission Date: 20111010
  Serious: Yes (Disabling)
  Sender: FDA-Public Use
  Company Number: 032181

PATIENT
  Sex: Male
  Weight: 87 kg

DRUGS (7)
  1. AMLODIPINE [Concomitant]
  2. PREDNISOLONE [Concomitant]
  3. CIMZIA [Suspect]
     Indication: RHEUMATOID ARTHRITIS
     Dosage: 200 MG, NO OF DOSES RECEIVED: 14 SUBCUTANEOUS
     Route: 058
     Dates: start: 20101111
  4. ALENDRONIC ACID [Concomitant]
  5. MARCUMAR [Concomitant]
  6. METHOTREXATE [Concomitant]
  7. HYDROCHLOROTHIAZIDE [Concomitant]

REACTIONS (3)
  - BONE INFARCTION [None]
  - JOINT SWELLING [None]
  - ARTHRALGIA [None]
